FAERS Safety Report 7344010-3 (Version None)
Quarter: 2011Q1

REPORT INFORMATION
  Report Type: 
  Country: None (occurrence: None)
  Receive Date: 20110310
  Receipt Date: 20100419
  Transmission Date: 20110831
  Serious: No
  Sender: FDA-Public Use
  Company Number: A0855639A

PATIENT
  Sex: Female

DRUGS (2)
  1. NICORETTE [Suspect]
  2. NICORETTE [Suspect]

REACTIONS (4)
  - INTENTIONAL DRUG MISUSE [None]
  - OROPHARYNGEAL BLISTERING [None]
  - ORAL DISCOMFORT [None]
  - LEUKOPLAKIA [None]
